FAERS Safety Report 8729654 (Version 2)
Quarter: 2012Q4

REPORT INFORMATION
  Report Type: Report from Study
  Country: DE (occurrence: DE)
  Receive Date: 20120817
  Receipt Date: 20120830
  Transmission Date: 20130627
  Serious: Yes (Hospitalization)
  Sender: FDA-Public Use
  Company Number: DE-PFIZER INC-2012194895

PATIENT
  Age: 56 Year
  Sex: Female
  Weight: 70 kg

DRUGS (14)
  1. IRINOTECAN HCL [Suspect]
     Indication: COLORECTAL CANCER METASTATIC
     Dosage: 180 mg/m2, cyclic (day 1 every 14 days)
     Route: 042
     Dates: start: 20120619
  2. FLUOROURACIL [Suspect]
     Indication: COLORECTAL CANCER METASTATIC
     Dosage: 400 mg/m2 on day 1
     Route: 040
     Dates: start: 20120619
  3. FLUOROURACIL [Suspect]
     Dosage: 2400 mg/m2, cyclic (on days 1 and 2 every 14 days)
     Route: 042
     Dates: start: 20120619
  4. FOLINIC ACID [Suspect]
     Indication: COLORECTAL CANCER METASTATIC
     Dosage: 400 mg/m2, cyclic (day 1 every 14 days)
     Route: 042
     Dates: start: 20120619
  5. UNSPECIFIED INGREDIENT [Suspect]
     Indication: COLORECTAL CANCER METASTATIC
     Dosage: cyclic (every 14 days)
     Route: 042
     Dates: start: 20120619
  6. LOPERAMID [Concomitant]
     Indication: DIARRHOEA
     Dosage: UNK
     Dates: start: 20120625
  7. AMPHO-MORONAL [Concomitant]
     Indication: MUCOSAL INFLAMMATION
     Dosage: UNK
     Dates: start: 20120704
  8. FORTECORTIN [Concomitant]
     Indication: PROPHYLAXIS
     Dosage: UNK
     Dates: start: 20120620
  9. PALLADON [Concomitant]
     Indication: ABDOMINAL PAIN
     Dosage: UNK
     Dates: start: 20120618
  10. NOVALGIN [Concomitant]
     Indication: ABDOMINAL PAIN
     Dosage: UNK
     Dates: start: 20120618
  11. INNOHEP [Concomitant]
     Indication: PROPHYLAXIS
     Dosage: UNK
     Dates: start: 20120511
  12. PANTOZOL [Concomitant]
     Indication: PROPHYLAXIS
     Dosage: UNK
     Dates: start: 20120505
  13. TRAMAL [Concomitant]
     Indication: PAIN
     Dosage: UNK
     Dates: start: 20120610
  14. MIMPARA [Concomitant]
     Indication: HYPERPARATHYROIDISM
     Dosage: UNK
     Dates: start: 20120304

REACTIONS (1)
  - Bile duct stenosis [Recovered/Resolved with Sequelae]
